FAERS Safety Report 11800138 (Version 2)
Quarter: 2016Q1

REPORT INFORMATION
  Report Type: Spontaneous
  Country: JP (occurrence: JP)
  Receive Date: 20151203
  Receipt Date: 20160318
  Transmission Date: 20160525
  Serious: Yes (Hospitalization)
  Sender: FDA-Public Use
  Company Number: JP-ALLERGAN-1525115US

PATIENT
  Age: 2 Year
  Sex: Male

DRUGS (14)
  1. DIAZEPAM. [Concomitant]
     Active Substance: DIAZEPAM
  2. PHENOBAL [Concomitant]
     Active Substance: PHENOBARBITAL
  3. GASMOTIN [Concomitant]
     Active Substance: MOSAPRIDE CITRATE
  4. MUCODYNE [Concomitant]
     Active Substance: CARBOCYSTEINE
  5. BOTOX [Suspect]
     Active Substance: ONABOTULINUMTOXINA
     Indication: CEREBRAL PALSY
     Dosage: 30 UNITS, UNK
     Route: 030
     Dates: start: 20151113, end: 20151113
  6. BOTOX [Suspect]
     Active Substance: ONABOTULINUMTOXINA
     Dosage: 10 UNITS, SINGLE
     Route: 030
     Dates: start: 20151113, end: 20151113
  7. DEPAKENE [Concomitant]
     Active Substance: VALPROIC ACID
  8. TIZANIDINE. [Concomitant]
     Active Substance: TIZANIDINE
  9. LEVOCARNITINE HYDROCHLORIDE [Concomitant]
     Active Substance: LEVOCARNITINE HYDROCHLORIDE
  10. MUCOSOLVAN [Concomitant]
     Active Substance: AMBROXOL HYDROCHLORIDE
     Indication: PRODUCT USED FOR UNKNOWN INDICATION
  11. EXCEGRAN [Concomitant]
     Active Substance: ZONISAMIDE
  12. BOTOX [Suspect]
     Active Substance: ONABOTULINUMTOXINA
     Indication: MUSCLE SPASMS
     Dosage: 30 UNITS, SINGLE
     Route: 030
     Dates: start: 20151113, end: 20151113
  13. BOTOX [Suspect]
     Active Substance: ONABOTULINUMTOXINA
     Dosage: 20 UNK, UNK
     Route: 030
     Dates: start: 20151113, end: 20151113
  14. LIORESAL [Concomitant]
     Active Substance: BACLOFEN

REACTIONS (3)
  - Laryngitis [Recovered/Resolved]
  - Pneumonia [Recovered/Resolved]
  - Dyspnoea [Unknown]

NARRATIVE: CASE EVENT DATE: 20151116
